FAERS Safety Report 4546461-9 (Version None)
Quarter: 2005Q1

REPORT INFORMATION
  Report Type: 
  Country: None (occurrence: None)
  Receive Date: 20050106
  Receipt Date: 20040225
  Transmission Date: 20050727
  Serious: Yes (Life-Threatening, Hospitalization)
  Sender: FDA-Public Use
  Company Number: US-GLAXOSMITHKLINE-A0500139A

PATIENT
  Age: 12 Year
  Sex: Male

DRUGS (4)
  1. LAMICTAL [Suspect]
     Indication: EPILEPSY
     Dosage: 25MG TWICE PER DAY
     Route: 048
     Dates: start: 20040205, end: 20040219
  2. KEPPRA [Concomitant]
     Dosage: 750MG TWICE PER DAY
     Dates: start: 20031101
  3. OMNICEF [Concomitant]
     Indication: BRONCHITIS
     Dosage: 300MG TWICE PER DAY
     Dates: start: 20040216
  4. ATENOLOL [Concomitant]

REACTIONS (49)
  - ANHIDROSIS [None]
  - ANXIETY [None]
  - ASTHENIA [None]
  - BLISTER [None]
  - BRONCHITIS [None]
  - BURNS SECOND DEGREE [None]
  - CHAPPED LIPS [None]
  - CHOKING [None]
  - CONDITION AGGRAVATED [None]
  - CONJUNCTIVITIS [None]
  - CONVULSION [None]
  - DEPRESSION [None]
  - DERMATITIS BULLOUS [None]
  - DYSURIA [None]
  - EATING DISORDER [None]
  - ERYTHEMA [None]
  - EYE PAIN [None]
  - EYELID OEDEMA [None]
  - FATIGUE [None]
  - FEAR [None]
  - FEEDING TUBE COMPLICATION [None]
  - FEELING HOT [None]
  - HEART RATE INCREASED [None]
  - ILL-DEFINED DISORDER [None]
  - OEDEMA [None]
  - ORAL DISCOMFORT [None]
  - ORAL INTAKE REDUCED [None]
  - ORAL MUCOSAL EXFOLIATION [None]
  - PAIN OF SKIN [None]
  - PRODUCTIVE COUGH [None]
  - PRURITUS [None]
  - PYREXIA [None]
  - REFUSAL OF TREATMENT BY PATIENT [None]
  - RETINITIS [None]
  - SCAR [None]
  - SKIN DISORDER [None]
  - SKIN EXFOLIATION [None]
  - SKIN HYPERPIGMENTATION [None]
  - SKIN HYPOPIGMENTATION [None]
  - STEVENS-JOHNSON SYNDROME [None]
  - STOMATITIS [None]
  - SWEAT GLAND DISORDER [None]
  - SWELLING FACE [None]
  - TEMPERATURE INTOLERANCE [None]
  - THROAT IRRITATION [None]
  - TREATMENT NONCOMPLIANCE [None]
  - UPPER RESPIRATORY TRACT INFLAMMATION [None]
  - VISION BLURRED [None]
  - VOMITING [None]
